FAERS Safety Report 5499271-2 (Version None)
Quarter: 2007Q4

REPORT INFORMATION
  Report Type: 
  Country: None (occurrence: None)
  Receive Date: 20071026
  Receipt Date: 20070914
  Transmission Date: 20080405
  Serious: Yes (Other)
  Sender: FDA-Public Use
  Company Number: PHHO2007CL17718

PATIENT
  Age: 56 Year
  Sex: Female

DRUGS (1)
  1. TAREG [Suspect]
     Route: 048

REACTIONS (6)
  - BACK PAIN [None]
  - CHILLS [None]
  - COUGH [None]
  - DIARRHOEA [None]
  - HYPERHIDROSIS [None]
  - PNEUMONIA [None]
